FAERS Safety Report 24445405 (Version 2)
Quarter: 2025Q1

REPORT INFORMATION
  Report Type: Spontaneous
  Country: US (occurrence: US)
  Receive Date: 20241016
  Receipt Date: 20250205
  Transmission Date: 20250409
  Serious: Yes (Death, Life-Threatening, Other)
  Sender: PFIZER
  Company Number: US-PFIZER INC-PV202400132730

PATIENT
  Age: 20 Year
  Sex: Female

DRUGS (6)
  1. HEPARIN SODIUM [Suspect]
     Active Substance: HEPARIN SODIUM
     Indication: Anticoagulant therapy
     Dates: start: 19800114, end: 1980
  2. HEPARIN SODIUM [Suspect]
     Active Substance: HEPARIN SODIUM
     Indication: Hepatic vein thrombosis
  3. STREPTOKINASE [Suspect]
     Active Substance: STREPTOKINASE
     Indication: Anticoagulant therapy
     Dates: start: 19800114, end: 19800608
  4. STREPTOKINASE [Suspect]
     Active Substance: STREPTOKINASE
     Indication: Hepatic vein thrombosis
  5. COUMADIN [Suspect]
     Active Substance: WARFARIN SODIUM
     Indication: Anticoagulant therapy
     Dates: start: 19800225
  6. COUMADIN [Suspect]
     Active Substance: WARFARIN SODIUM
     Indication: Hepatic vein thrombosis

REACTIONS (2)
  - Heparin-induced thrombocytopenia [Fatal]
  - Drug ineffective [Fatal]

NARRATIVE: CASE EVENT DATE: 19800101
